FAERS Safety Report 5510167-X (Version None)
Quarter: 2007Q4

REPORT INFORMATION
  Report Type: 
  Country: None (occurrence: None)
  Receive Date: 20071108
  Receipt Date: 20070314
  Transmission Date: 20080405
  Serious: Yes (Other)
  Sender: FDA-Public Use
  Company Number: US-ASTRAZENECA-2007UW19923

PATIENT
  Age: 36 Year
  Sex: Male
  Weight: 79.5 kg

DRUGS (2)
  1. PRILOSEC OTC [Suspect]
     Route: 048
     Dates: start: 20060901
  2. PRILOSEC OTC [Suspect]
     Route: 048
     Dates: start: 20070311

REACTIONS (1)
  - ANAPHYLACTIC REACTION [None]
